FAERS Safety Report 8507694-X (Version None)
Quarter: 2012Q3

REPORT INFORMATION
  Report Type: 
  Country: None (occurrence: None)
  Receive Date: 20120713
  Receipt Date: 20120704
  Transmission Date: 20120928
  Serious: Yes (Life-Threatening, Other)
  Sender: FDA-Public Use
  Company Number: GB-ACCORD-014045

PATIENT
  Age: 49 Year
  Sex: Female

DRUGS (5)
  1. CLOZAPINE [Suspect]
     Indication: SCHIZOPHRENIA
     Route: 048
     Dates: start: 20060101, end: 20120109
  2. ZOPICLONE [Concomitant]
     Dosage: ONGOING USE FOR YEARS, STILL TAKING.
     Route: 048
  3. MIRTAZAPINE [Suspect]
     Indication: DEPRESSION
     Route: 048
     Dates: end: 20120121
  4. TOPIRAMATE [Suspect]
     Indication: SCHIZOPHRENIA
     Route: 048
     Dates: start: 20070101, end: 20120121
  5. AMOXICILLIN [Concomitant]
     Indication: TOOTHACHE
     Route: 048
     Dates: start: 20120116, end: 20120126

REACTIONS (1)
  - NEUTROPENIA [None]
